FAERS Safety Report 17720565 (Version 1)
Quarter: 2020Q2

REPORT INFORMATION
  Report Type: Spontaneous
  Country: US (occurrence: US)
  Receive Date: 20200428
  Receipt Date: 20200428
  Transmission Date: 20200714
  Serious: No
  Sender: FDA-Public Use
  Company Number: US-ROCHE-2353374

PATIENT
  Sex: Male

DRUGS (1)
  1. AVASTIN [Suspect]
     Active Substance: BEVACIZUMAB
     Indication: COLON CANCER
     Dosage: 25MG/ML, 4ML SDV
     Route: 042

REACTIONS (5)
  - Nausea [Unknown]
  - Neuropathy peripheral [Unknown]
  - Stomatitis [Unknown]
  - Dysphagia [Unknown]
  - Hypoaesthesia [Unknown]
